FAERS Safety Report 11382165 (Version 1)
Quarter: 2015Q3

REPORT INFORMATION
  Report Type: Spontaneous
  Country: US (occurrence: US)
  Receive Date: 20150811
  Receipt Date: 20150811
  Transmission Date: 20151125
  Serious: No
  Sender: FDA-Public Use
  Company Number: US-ELI_LILLY_AND_COMPANY-US201002000792

PATIENT
  Age: 39 Year
  Sex: Male

DRUGS (1)
  1. CIALIS [Suspect]
     Active Substance: TADALAFIL
     Indication: ERECTILE DYSFUNCTION
     Dosage: 5 MG, DAILY (1/D)
     Dates: start: 20100122

REACTIONS (3)
  - Drug ineffective [Unknown]
  - Erectile dysfunction [Recovered/Resolved]
  - Premature ejaculation [Recovered/Resolved]

NARRATIVE: CASE EVENT DATE: 20100125
